FAERS Safety Report 8268015-3 (Version None)
Quarter: 2012Q2

REPORT INFORMATION
  Report Type: 
  Country: None (occurrence: None)
  Receive Date: 20120409
  Receipt Date: 20120403
  Transmission Date: 20120825
  Serious: No
  Sender: FDA-Public Use
  Company Number: US-TEVA-331646USA

PATIENT
  Sex: Male

DRUGS (1)
  1. PROAIR HFA [Suspect]
     Indication: DYSPNOEA
     Dosage: 360 MICROGRAM;
     Route: 055
     Dates: start: 20080101, end: 20120327

REACTIONS (3)
  - PROSTATIC DISORDER [None]
  - NERVOUSNESS [None]
  - LACRIMATION INCREASED [None]
